FAERS Safety Report 6836557-0 (Version None)
Quarter: 2010Q3

REPORT INFORMATION
  Report Type: 
  Country: None (occurrence: None)
  Receive Date: 20100713
  Receipt Date: 20100707
  Transmission Date: 20110219
  Serious: Yes (Life-Threatening, Hospitalization)
  Sender: FDA-Public Use
  Company Number: CHPA2010DE11176

PATIENT
  Age: 58 Year
  Sex: Female
  Weight: 54 kg

DRUGS (2)
  1. CLEMASTINE HYDROGEN FUMARATE (NCH) [Suspect]
     Dosage: 2 MG, QD
  2. RANITIDINE [Suspect]
     Indication: PREMEDICATION
     Dosage: 50 MG, QD

REACTIONS (7)
  - BLOOD PRESSURE IMMEASURABLE [None]
  - CYANOSIS [None]
  - FLUSHING [None]
  - HYPERSENSITIVITY [None]
  - PERIPHERAL CIRCULATORY FAILURE [None]
  - PRURITUS [None]
  - PULSE ABSENT [None]
